FAERS Safety Report 8283310-X (Version None)
Quarter: 2012Q2

REPORT INFORMATION
  Report Type: 
  Country: None (occurrence: None)
  Receive Date: 20120413
  Receipt Date: 20120403
  Transmission Date: 20120825
  Serious: Yes (Hospitalization, Other)
  Sender: FDA-Public Use
  Company Number: US-ELI_LILLY_AND_COMPANY-US201203005456

PATIENT
  Sex: Male
  Weight: 73.469 kg

DRUGS (9)
  1. LETAIRIS [Concomitant]
     Indication: PULMONARY ARTERIAL HYPERTENSION
     Dosage: 5 MG, QD
     Dates: start: 20110109
  2. PRAVACHOL [Concomitant]
     Dosage: 40 DF, UNK
     Route: 048
     Dates: start: 20100602
  3. ADCIRCA [Suspect]
     Indication: PULMONARY ARTERIAL HYPERTENSION
     Dosage: 40 MG, QD
     Dates: start: 20110826
  4. TYVASO [Concomitant]
     Indication: PULMONARY ARTERIAL HYPERTENSION
     Dosage: 216 UG, QD
     Dates: start: 20100709
  5. LASIX [Concomitant]
     Indication: DIURETIC THERAPY
     Dosage: 80 DF, UNK
     Route: 048
     Dates: start: 20100602
  6. COUMADIN [Concomitant]
     Indication: ANTICOAGULANT THERAPY
     Dosage: 7.5 DF, UNK
     Route: 048
     Dates: start: 20100602
  7. SPIRIVA [Concomitant]
     Indication: CHRONIC OBSTRUCTIVE PULMONARY DISEASE
     Dosage: 1 DF, UNK
     Route: 055
     Dates: start: 20100602
  8. COREG [Concomitant]
     Indication: HYPERTENSION
     Dosage: 12.5 DF, UNK
     Route: 048
     Dates: start: 20100602
  9. SPIRONOLACTONE [Concomitant]
     Indication: DIURETIC THERAPY
     Dosage: 25 DF, UNK
     Route: 048
     Dates: start: 20100602

REACTIONS (1)
  - PNEUMONIA [None]
